FAERS Safety Report 10343105 (Version 4)
Quarter: 2014Q4

REPORT INFORMATION
  Report Type: Report from Study
  Country: JP (occurrence: JP)
  Receive Date: 20140725
  Receipt Date: 20141223
  Transmission Date: 20150528
  Serious: Yes (Life-Threatening, Hospitalization)
  Sender: FDA-Public Use
  Company Number: PHHY2009JP19523

PATIENT
  Age: 77 Year
  Sex: Male

DRUGS (14)
  1. BAYASPIRIN [Suspect]
     Active Substance: ASPIRIN
     Dosage: 100 MG, DAILY
     Route: 048
     Dates: start: 20090420
  2. AMN107 [Suspect]
     Active Substance: NILOTINIB
     Dosage: 400 MG, QD
     Route: 048
     Dates: start: 20090604, end: 20090611
  3. AMN107 [Suspect]
     Active Substance: NILOTINIB
     Dosage: 600 MG, QD
     Route: 048
     Dates: start: 20091212, end: 20110421
  4. AMN107 [Suspect]
     Active Substance: NILOTINIB
     Dosage: 800 MG, QD
     Route: 048
     Dates: start: 20090612, end: 20091211
  5. NOVORAPID [Concomitant]
     Active Substance: INSULIN ASPART
     Dosage: 28 IU
     Route: 048
     Dates: start: 20090420
  6. ALLELOCK [Concomitant]
     Active Substance: OLOPATADINE HYDROCHLORIDE
     Dosage: 10 MG
     Route: 048
     Dates: start: 20090420
  7. AMN107 [Suspect]
     Active Substance: NILOTINIB
     Indication: CHRONIC MYELOID LEUKAEMIA
     Dosage: 800 MG, QD
     Route: 048
     Dates: start: 20090420, end: 20090423
  8. GLIVEC [Suspect]
     Active Substance: IMATINIB MESYLATE
     Dosage: 300 MG, PER DAY
     Dates: start: 20070410, end: 20090419
  9. NOVORAPID [Concomitant]
     Active Substance: INSULIN ASPART
     Dosage: 12 IU
     Route: 048
     Dates: start: 20090420
  10. HYDREA [Concomitant]
     Active Substance: HYDROXYUREA
     Indication: CHRONIC MYELOID LEUKAEMIA
     Dosage: 1250 MG
     Route: 048
     Dates: start: 20110421
  11. GLIVEC [Suspect]
     Active Substance: IMATINIB MESYLATE
     Indication: CHRONIC MYELOID LEUKAEMIA
     Dosage: 400 MG, PER DAY
     Dates: start: 20060218
  12. LUPRAC [Concomitant]
     Active Substance: TORSEMIDE
     Dosage: 8 MG
     Route: 048
     Dates: start: 20090420
  13. URALYT [Concomitant]
     Active Substance: POTASSIUM CITRATE\TRISODIUM CITRATE DIHYDRATE
     Dosage: 2 DF
     Route: 048
     Dates: start: 20090420
  14. ARTIST [Concomitant]
     Active Substance: CARVEDILOL
     Dosage: 10 MG
     Route: 048
     Dates: start: 20090420

REACTIONS (6)
  - Hyperglycaemia [Recovering/Resolving]
  - Palpitations [Recovering/Resolving]
  - Cardiac failure [Recovering/Resolving]
  - Gastric haemorrhage [Recovering/Resolving]
  - Gastric ulcer [Recovering/Resolving]
  - Malignant neoplasm progression [Unknown]

NARRATIVE: CASE EVENT DATE: 20090423
